FAERS Safety Report 15929080 (Version 3)
Quarter: 2019Q1

REPORT INFORMATION
  Report Type: Report from Study
  Country: BE (occurrence: BE)
  Receive Date: 20190206
  Receipt Date: 20190308
  Transmission Date: 20190417
  Serious: Yes (Other)
  Sender: FDA-Public Use
  Company Number: BE-TAKEDA-2019TUS004778

PATIENT
  Age: 65 Year
  Sex: Male

DRUGS (1)
  1. VEDOLIZUMAB [Suspect]
     Active Substance: VEDOLIZUMAB
     Indication: CROHN^S DISEASE
     Dosage: UNK
     Route: 042
     Dates: start: 20151014, end: 20170607

REACTIONS (1)
  - Prostate cancer [Recovered/Resolved]

NARRATIVE: CASE EVENT DATE: 20180628
